FAERS Safety Report 7030307-3 (Version None)
Quarter: 2010Q4

REPORT INFORMATION
  Report Type: 
  Country: None (occurrence: None)
  Receive Date: 20101006
  Receipt Date: 20100930
  Transmission Date: 20110411
  Serious: Yes (Hospitalization, Other)
  Sender: FDA-Public Use
  Company Number: BR-SANOFI-AVENTIS-2010SA059018

PATIENT
  Sex: Female
  Weight: 57 kg

DRUGS (5)
  1. LANTUS [Suspect]
     Route: 058
  2. AUTOPEN 24 [Suspect]
  3. NOVORAPID [Concomitant]
     Route: 058
  4. DIAMOX SRC [Concomitant]
     Route: 048
     Dates: start: 20100301
  5. METFORMIN HYDROCHLORIDE [Concomitant]
     Route: 048

REACTIONS (7)
  - CARDIAC ARREST [None]
  - CHEST PAIN [None]
  - DIABETIC RETINOPATHY [None]
  - EYE HAEMORRHAGE [None]
  - EYELID DISORDER [None]
  - PAIN IN EXTREMITY [None]
  - VISUAL IMPAIRMENT [None]
